FAERS Safety Report 4494477-3 (Version None)
Quarter: 2004Q4

REPORT INFORMATION
  Report Type: 
  Country: None (occurrence: None)
  Receive Date: 20041102
  Receipt Date: 20041015
  Transmission Date: 20050328
  Serious: Yes (Hospitalization)
  Sender: FDA-Public Use
  Company Number: DSA_24999_2004

PATIENT
  Age: 74 Year
  Sex: Male

DRUGS (4)
  1. DILTIAZEM HCL [Suspect]
     Indication: PRINZMETAL ANGINA
     Dosage: 200 MG Q DAY PO
     Route: 048
     Dates: start: 20040308, end: 20040906
  2. PENTASA [Suspect]
     Indication: COLITIS ULCERATIVE
     Dosage: 2250 MG Q DAY PO
     Route: 048
     Dates: start: 19981001, end: 20040910
  3. FAMOTIDINE [Suspect]
     Indication: GASTRIC ULCER
     Dosage: 40 MG Q DAY PO
     Route: 048
     Dates: end: 20040906
  4. STEROID PREPARATION [Concomitant]

REACTIONS (5)
  - C-REACTIVE PROTEIN INCREASED [None]
  - POSTOPERATIVE FEVER [None]
  - RASH ERYTHEMATOUS [None]
  - RASH GENERALISED [None]
  - SPINAL DECOMPRESSION [None]
